FAERS Safety Report 8560726-5 (Version None)
Quarter: 2012Q3

REPORT INFORMATION
  Report Type: 
  Country: None (occurrence: None)
  Receive Date: 20120802
  Receipt Date: 20120730
  Transmission Date: 20120928
  Serious: Yes (Hospitalization)
  Sender: FDA-Public Use
  Company Number: PHHO2010IE18890

PATIENT
  Sex: Female
  Weight: 94.9 kg

DRUGS (15)
  1. AFINITOR [Suspect]
     Dosage: 5 MG, DAILY
     Route: 048
     Dates: start: 20101221, end: 20110105
  2. PACLITAXEL [Suspect]
     Dosage: NO TREATMENT RECEIVED
     Dates: start: 20101215, end: 20101219
  3. NAPROXEN [Concomitant]
  4. AMITRIPTLINE HYDROCHLORIDE TAB [Concomitant]
  5. CRESTOR [Concomitant]
  6. AFINITOR [Suspect]
     Indication: BREAST CANCER METASTATIC
     Dosage: 10 MG DAILY
     Route: 048
     Dates: start: 20101130, end: 20101211
  7. PACLITAXEL [Suspect]
     Dosage: 60 MG, UNK
     Dates: start: 20101220
  8. ATECOR [Concomitant]
  9. PACLITAXEL [Suspect]
     Indication: BREAST CANCER METASTATIC
     Dosage: 80 MG/M2 DAY 1,8,5 OF 28 DAY CYCLE
     Route: 042
     Dates: end: 20101214
  10. COMPARATOR TRASTUZUMAB [Suspect]
     Indication: BREAST CANCER METASTATIC
     Dosage: 380 MG, UNK
     Dates: start: 20101130
  11. COMPARATOR TRASTUZUMAB [Suspect]
     Dosage: NO TREATMENT RECEIVED
     Dates: start: 20101215, end: 20101220
  12. COMPARATOR TRASTUZUMAB [Suspect]
     Dosage: UNK
     Dates: start: 20101221
  13. FLUCONAZOLE [Concomitant]
     Indication: VULVOVAGINAL CANDIDIASIS
     Dosage: UNK
     Dates: start: 20101216, end: 20101220
  14. AFINITOR [Suspect]
     Dosage: 5 MG, DAILY
     Route: 048
     Dates: start: 20110127
  15. COMPARATOR TRASTUZUMAB [Suspect]
     Dosage: 190 MG, UNK
     Dates: end: 20101207

REACTIONS (2)
  - FEBRILE NEUTROPENIA [None]
  - CATHETER SITE INFECTION [None]
